FAERS Safety Report 9375321 (Version 3)
Quarter: 2013Q3

REPORT INFORMATION
  Report Type: Spontaneous
  Country: US (occurrence: US)
  Receive Date: 20130628
  Receipt Date: 20130813
  Transmission Date: 20140515
  Serious: Yes (Life-Threatening, Disabling, Other)
  Sender: FDA-Public Use
  Company Number: US-009507513-1306USA013688

PATIENT
  Age: 75 Year
  Sex: Male
  Weight: 82.99 kg

DRUGS (1)
  1. JANUVIA [Suspect]
     Indication: DIABETES MELLITUS
     Dosage: 100 MG, QD
     Route: 048
     Dates: start: 20080519, end: 20130201

REACTIONS (22)
  - Pancreatic carcinoma [Not Recovered/Not Resolved]
  - Jaundice cholestatic [Recovered/Resolved]
  - Liver disorder [Unknown]
  - Gastrooesophageal reflux disease [Unknown]
  - Pancreatic stent placement [Unknown]
  - Bile duct stent insertion [Unknown]
  - Hypertension [Unknown]
  - Hyperlipidaemia [Unknown]
  - Carcinoid tumour of the duodenum [Unknown]
  - Biliary sphincterotomy [Unknown]
  - Paraesthesia [Unknown]
  - Dysuria [Unknown]
  - Night sweats [Unknown]
  - Joint swelling [Unknown]
  - Muscle spasms [Unknown]
  - Increased tendency to bruise [Unknown]
  - Stomatitis [Unknown]
  - Balance disorder [Unknown]
  - Dyspepsia [Unknown]
  - Diarrhoea [Unknown]
  - Constipation [Unknown]
  - Hypoaesthesia [Unknown]
